FAERS Safety Report 14732434 (Version 1)
Quarter: 2018Q2

REPORT INFORMATION
  Report Type: Spontaneous
  Country: PL (occurrence: PL)
  Receive Date: 20180409
  Receipt Date: 20180409
  Transmission Date: 20180711
  Serious: Yes (Hospitalization, Other)
  Sender: FDA-Public Use
  Company Number: PL-ROCHE-2097812

PATIENT
  Age: 47 Year
  Sex: Male
  Weight: 116 kg

DRUGS (2)
  1. ROACTEMRA [Suspect]
     Active Substance: TOCILIZUMAB
     Indication: RHEUMATOID ARTHRITIS
     Route: 042
     Dates: start: 20171002, end: 20180219
  2. ROACTEMRA [Suspect]
     Active Substance: TOCILIZUMAB
     Indication: RHEUMATOID ARTHRITIS
     Route: 058
     Dates: start: 20180314

REACTIONS (8)
  - Genital erythema [Unknown]
  - Scrotal swelling [Unknown]
  - Off label use [Unknown]
  - Erythema [Unknown]
  - Rash maculo-papular [Unknown]
  - Abdominal distension [Unknown]
  - Inappropriate schedule of drug administration [Unknown]
  - Swelling [Unknown]

NARRATIVE: CASE EVENT DATE: 20180323
